FAERS Safety Report 16225708 (Version 4)
Quarter: 2019Q3

REPORT INFORMATION
  Report Type: Spontaneous
  Country: ES (occurrence: ES)
  Receive Date: 20190422
  Receipt Date: 20190710
  Transmission Date: 20191004
  Serious: Yes (Other)
  Sender: FDA-Public Use
  Company Number: ES-CELLTRION INC.-2019ES020529

PATIENT

DRUGS (11)
  1. RITUXIMAB (UNKNOWN) [Suspect]
     Active Substance: RITUXIMAB
     Indication: IMMUNE THROMBOCYTOPENIC PURPURA
     Dosage: UNK
     Route: 041
     Dates: start: 201512
  2. PREDNISOLONE. [Concomitant]
     Active Substance: PREDNISOLONE
     Dosage: 0.7 MG/KG/DAY FOR A MONTH
     Route: 065
  3. AUXINA A E [Concomitant]
     Dosage: 50000 IU, FREQUENCY: 2 DAYS/WEEK
     Route: 065
     Dates: start: 20160121
  4. ANTI-D IMMUNOGLOBULIN [Concomitant]
     Active Substance: HUMAN RHO(D) IMMUNE GLOBULIN
     Dosage: UNK
     Route: 065
     Dates: start: 201512
  5. METHYLPREDNISOLONE. [Concomitant]
     Active Substance: METHYLPREDNISOLONE
     Dosage: 1 MG/KG
     Route: 065
  6. DEXCHLORPHENIRAMINE [Concomitant]
     Active Substance: DEXCHLORPHENIRAMINE
     Dosage: 0.1 MG/KG
     Route: 065
  7. RITUXIMAB (UNKNOWN) [Suspect]
     Active Substance: RITUXIMAB
     Dosage: 375 MG/M2
     Route: 041
     Dates: start: 20160212
  8. METIMAZOL [Concomitant]
     Active Substance: METHIMAZOLE
     Dosage: 0.1 MG/KG
     Route: 065
  9. IMMUNGLOBULIN [Concomitant]
     Active Substance: HUMAN IMMUNOGLOBULIN G
     Dosage: UNK
  10. OSELTAMIVIR [Concomitant]
     Active Substance: OSELTAMIVIR
     Dosage: 60 UG PER DAY
     Route: 065
     Dates: start: 20160213
  11. ELTROMBOPAG [Concomitant]
     Active Substance: ELTROMBOPAG
     Indication: PRODUCT USED FOR UNKNOWN INDICATION
     Dosage: UNK

REACTIONS (9)
  - Off label use [Unknown]
  - Eosinophilia [Unknown]
  - Intentional product use issue [Unknown]
  - Skin erosion [Recovering/Resolving]
  - Angiolymphoid hyperplasia with eosinophilia [Recovering/Resolving]
  - Thrombocytopenia [Unknown]
  - Nodule [Recovering/Resolving]
  - Erythema [Recovering/Resolving]
  - Product use issue [Unknown]

NARRATIVE: CASE EVENT DATE: 20151201
